FAERS Safety Report 23474754 (Version 1)
Quarter: 2024Q1

REPORT INFORMATION
  Report Type: Spontaneous
  Country: JP (occurrence: JP)
  Receive Date: 20240204
  Receipt Date: 20240204
  Transmission Date: 20240409
  Serious: Yes (Other)
  Sender: FDA-Public Use
  Company Number: JP-EXELIXIS-CABO-23065878

PATIENT
  Age: 89 Year
  Sex: Male

DRUGS (8)
  1. CABOMETYX [Suspect]
     Active Substance: CABOZANTINIB S-MALATE
     Indication: Clear cell renal cell carcinoma
     Dosage: 60 MG, QD
  2. OXYCODONE [Concomitant]
     Active Substance: OXYCODONE\OXYCODONE HYDROCHLORIDE
  3. TRAZODONE [Concomitant]
     Active Substance: TRAZODONE HYDROCHLORIDE
  4. NALDEMEDINE [Concomitant]
     Active Substance: NALDEMEDINE
  5. RABEPRAZOLE [Concomitant]
     Active Substance: RABEPRAZOLE
  6. SOLIFENACIN [Concomitant]
     Active Substance: SOLIFENACIN
  7. FEBUXOSTAT [Concomitant]
     Active Substance: FEBUXOSTAT
  8. LEMBOREXANT [Concomitant]
     Active Substance: LEMBOREXANT

REACTIONS (1)
  - Malignant neoplasm progression [Unknown]
